FAERS Safety Report 4726220-4 (Version None)
Quarter: 2005Q3

REPORT INFORMATION
  Report Type: 
  Country: None (occurrence: None)
  Receive Date: 20050725
  Receipt Date: 20050715
  Transmission Date: 20060218
  Serious: Yes (Hospitalization)
  Sender: FDA-Public Use
  Company Number: 200510303BYL

PATIENT
  Age: 86 Year
  Sex: Female
  Weight: 45.2 kg

DRUGS (14)
  1. ADALAT [Suspect]
     Indication: HYPERTENSION
     Dosage: 20 MG, BID, ORAL
     Route: 048
     Dates: start: 20050528, end: 20050604
  2. CONIEL (BENIDIPINE HYDROCHLORIDE) [Suspect]
     Indication: HYPERTENSION
     Dosage: 8 MG, QS, ORAL
     Route: 048
     Dates: end: 20050604
  3. CEROCRAL [Concomitant]
  4. ISOSORBIDE MONONITRATE [Concomitant]
  5. ASPIRIN [Concomitant]
  6. KETOPROFEN [Concomitant]
  7. OPALMON [Concomitant]
  8. ISALON [Concomitant]
  9. ADETPHOS [Concomitant]
  10. TAKEPRON [Concomitant]
  11. MERISLON [Concomitant]
  12. JUVELA [Concomitant]
  13. VITAMED IN CAPSULE [Concomitant]
  14. RIZE [Concomitant]

REACTIONS (1)
  - SHOCK [None]
